FAERS Safety Report 4366145-X (Version None)
Quarter: 2004Q2

REPORT INFORMATION
  Report Type: 
  Country: None (occurrence: None)
  Receive Date: 20040524
  Receipt Date: 20040507
  Transmission Date: 20050107
  Serious: Yes (Hospitalization)
  Sender: FDA-Public Use
  Company Number: T04-BEL-02222-01

PATIENT
  Age: 75 Year
  Sex: Male

DRUGS (10)
  1. MEMANTINE (OPEN LABEL) (MEMANTINE) [Suspect]
     Indication: DEMENTIA ALZHEIMER'S TYPE
     Dosage: 20 MG QD PO
     Route: 048
     Dates: start: 20030120
  2. LACRYSTAT [Concomitant]
  3. PRANOX (PRANOPROFEN) [Concomitant]
  4. ACETYLSALICYLIC ACID SRT [Concomitant]
  5. PERSANTINE [Concomitant]
  6. CIPRAMIL (CITALOPRAM HYDROBROMIDE) [Concomitant]
  7. TRAZOLAN (TRAZODONE HYDROCHLORIDE) [Concomitant]
  8. PANTOZOL (PANTOPRAZOLE SODIUM) [Concomitant]
  9. DIAMICRON (GLICLAZIDE) [Concomitant]
  10. GLUCOPHAGE ^BRISTOL-MYERS SQUIBB^ (METFORMIN) [Concomitant]

REACTIONS (8)
  - BLOOD GLUCOSE INCREASED [None]
  - BLOOD URIC ACID DECREASED [None]
  - DECREASED INTEREST [None]
  - DEPRESSED LEVEL OF CONSCIOUSNESS [None]
  - DIZZINESS [None]
  - HYPERTONIA [None]
  - MUSCLE RIGIDITY [None]
  - RED BLOOD CELL COUNT DECREASED [None]
